FAERS Safety Report 7748237-8 (Version None)
Quarter: 2011Q3

REPORT INFORMATION
  Report Type: 
  Country: None (occurrence: None)
  Receive Date: 20110913
  Receipt Date: 20110616
  Transmission Date: 20111222
  Serious: No
  Sender: FDA-Public Use
  Company Number: US-ELI_LILLY_AND_COMPANY-US201106006366

PATIENT
  Sex: Female

DRUGS (5)
  1. AMITRIPTYLINE HCL [Concomitant]
     Indication: PAIN
  2. VALPROIC ACID [Concomitant]
     Indication: DEPRESSION
  3. CYMBALTA [Suspect]
     Indication: FIBROMYALGIA
     Dosage: UNK, UNKNOWN
  4. TOPAMAX [Concomitant]
  5. ANTIDEPRESSANTS [Concomitant]

REACTIONS (1)
  - HEPATIC ENZYME INCREASED [None]
